FAERS Safety Report 9015535 (Version 1)
Quarter: 2013Q1

REPORT INFORMATION
  Report Type: Spontaneous
  Country: US (occurrence: None)
  Receive Date: 20130110
  Receipt Date: 20130110
  Transmission Date: 20140127
  Serious: Yes (Death)
  Sender: FDA-Public Use
  Company Number: None

PATIENT
  Age: 58 Year
  Sex: Male
  Weight: 63.5 kg

DRUGS (1)
  1. ATGAM [Suspect]
     Indication: APLASTIC ANAEMIA
     Route: 041

REACTIONS (7)
  - Therapeutic response decreased [None]
  - Infusion related reaction [None]
  - Hypoxia [None]
  - Pulseless electrical activity [None]
  - Ventricular fibrillation [None]
  - Torsade de pointes [None]
  - Cardiac arrest [None]
